FAERS Safety Report 4417728-X (Version None)
Quarter: 2004Q3

REPORT INFORMATION
  Report Type: 
  Country: None (occurrence: None)
  Receive Date: 20040803
  Receipt Date: 20040719
  Transmission Date: 20050211
  Serious: Yes (Other)
  Sender: FDA-Public Use
  Company Number: A-US2004-06777

PATIENT
  Age: 64 Year
  Sex: Female

DRUGS (11)
  1. TRACLEER [Suspect]
     Indication: PULMONARY HYPERTENSION
     Dosage: SEE IMAGE
     Route: 048
     Dates: start: 20021001, end: 20021101
  2. TRACLEER [Suspect]
     Indication: PULMONARY HYPERTENSION
     Dosage: SEE IMAGE
     Route: 048
     Dates: start: 20021101, end: 20030101
  3. TRACLEER [Suspect]
     Indication: PULMONARY HYPERTENSION
     Dosage: SEE IMAGE
     Route: 048
     Dates: start: 20030101, end: 20030701
  4. TRACLEER [Suspect]
     Indication: PULMONARY HYPERTENSION
     Dosage: SEE IMAGE
     Route: 048
     Dates: start: 20030701, end: 20040213
  5. LASIX [Concomitant]
  6. COUMADIN [Concomitant]
  7. MILK THISTLE [Concomitant]
  8. LEVOXYL [Concomitant]
  9. ALDACTONE [Concomitant]
  10. URSO [Concomitant]
  11. SILDENAFIL [Suspect]
     Indication: PULMONARY HYPERTENSION
     Dosage: 50 MG TID
     Dates: start: 20031118, end: 20040413

REACTIONS (12)
  - BLOOD CREATININE INCREASED [None]
  - BLOOD UREA INCREASED [None]
  - CHOLESTASIS [None]
  - FLUID OVERLOAD [None]
  - FLUID RETENTION [None]
  - HAEMATOCRIT DECREASED [None]
  - HAEMOGLOBIN DECREASED [None]
  - HEPATIC CONGESTION [None]
  - HEPATITIS ACUTE [None]
  - HYPERKALAEMIA [None]
  - HYPONATRAEMIA [None]
  - RASH [None]
